FAERS Safety Report 10464700 (Version 3)
Quarter: 2015Q2

REPORT INFORMATION
  Report Type: Report from Study
  Country: US (occurrence: US)
  Receive Date: 20140919
  Receipt Date: 20150630
  Transmission Date: 20150821
  Serious: Yes (Death, Other)
  Sender: FDA-Public Use
  Company Number: US-ASTELLAS-2014US012185

PATIENT
  Age: 56 Year
  Sex: Male

DRUGS (3)
  1. ERLOTINIB [Suspect]
     Active Substance: ERLOTINIB
     Indication: PANCREATIC CARCINOMA
  2. XELODA [Suspect]
     Active Substance: CAPECITABINE
     Indication: PANCREATIC CARCINOMA
     Dosage: UNK, UNKNOWN FREQ.
     Route: 065
     Dates: start: 20050808
  3. ERLOTINIB [Suspect]
     Active Substance: ERLOTINIB
     Indication: PANCREATIC CARCINOMA
     Route: 048

REACTIONS (7)
  - Pancytopenia [Fatal]
  - Acute kidney injury [Fatal]
  - Metabolic acidosis [Unknown]
  - Faeces discoloured [Unknown]
  - Off label use [Unknown]
  - Pancreatic carcinoma [Fatal]
  - Pyrexia [Unknown]

NARRATIVE: CASE EVENT DATE: 20051107
